FAERS Safety Report 8246120-5 (Version None)
Quarter: 2012Q1

REPORT INFORMATION
  Report Type: 
  Country: None (occurrence: None)
  Receive Date: 20120330
  Receipt Date: 20120322
  Transmission Date: 20120608
  Serious: Yes (Hospitalization)
  Sender: FDA-Public Use
  Company Number: CA-ELI_LILLY_AND_COMPANY-CA201203007083

PATIENT
  Age: 37 Year
  Sex: Female

DRUGS (9)
  1. PANTOPRAZOLE [Concomitant]
  2. FELODIPINE [Concomitant]
  3. FORTEO [Suspect]
     Indication: OSTEOPOROSIS
     Dosage: 20 UG, QD
     Route: 058
     Dates: start: 20110331, end: 20120101
  4. SODIUM BICARBONATE [Concomitant]
  5. EFFEXOR [Concomitant]
  6. CYCLOSPORINE [Concomitant]
  7. MYFORTIC [Concomitant]
     Indication: RENAL TRANSPLANT
  8. RENA-VITE [Concomitant]
  9. PREDNISONE TAB [Concomitant]

REACTIONS (3)
  - INTENTIONAL DRUG MISUSE [None]
  - PYREXIA [None]
  - CYSTITIS [None]
